FAERS Safety Report 18646069 (Version 1)
Quarter: 2020Q4

REPORT INFORMATION
  Report Type: Other
  Country: CA (occurrence: CA)
  Receive Date: 20201221
  Receipt Date: 20201221
  Transmission Date: 20210114
  Serious: Yes (Life-Threatening, Hospitalization)
  Sender: FDA-Public Use
  Company Number: CA-CELLTRION INC.-2020CA033893

PATIENT

DRUGS (26)
  1. ENBREL [Suspect]
     Active Substance: ETANERCEPT
     Indication: RHEUMATOID ARTHRITIS
  2. METHOTREXATE. [Suspect]
     Active Substance: METHOTREXATE
     Indication: RHEUMATOID ARTHRITIS
  3. ACTEMRA [Suspect]
     Active Substance: TOCILIZUMAB
     Indication: RHEUMATOID ARTHRITIS
  4. HYDROXYCHLOROQUINE SULFATE. [Suspect]
     Active Substance: HYDROXYCHLOROQUINE SULFATE
     Indication: RHEUMATOID ARTHRITIS
  5. ILARIS [Suspect]
     Active Substance: CANAKINUMAB
     Indication: SYSTEMIC LUPUS ERYTHEMATOSUS
     Route: 065
  6. ILARIS [Suspect]
     Active Substance: CANAKINUMAB
     Indication: RHEUMATOID ARTHRITIS
  7. SODIUM AUROTHIOMALATE [Suspect]
     Active Substance: GOLD SODIUM THIOMALATE
     Indication: SYSTEMIC LUPUS ERYTHEMATOSUS
     Route: 065
  8. ANAKINRA [Suspect]
     Active Substance: ANAKINRA
     Indication: RHEUMATOID ARTHRITIS
  9. HUMIRA [Suspect]
     Active Substance: ADALIMUMAB
     Indication: RHEUMATOID ARTHRITIS
  10. SODIUM AUROTHIOMALATE [Suspect]
     Active Substance: GOLD SODIUM THIOMALATE
     Indication: RHEUMATOID ARTHRITIS
  11. ANAKINRA [Suspect]
     Active Substance: ANAKINRA
     Indication: SYSTEMIC LUPUS ERYTHEMATOSUS
     Route: 065
  12. METHOTREXATE. [Suspect]
     Active Substance: METHOTREXATE
     Indication: SYSTEMIC LUPUS ERYTHEMATOSUS
     Route: 065
  13. ORENCIA [Suspect]
     Active Substance: ABATACEPT
     Indication: SYSTEMIC LUPUS ERYTHEMATOSUS
     Route: 042
  14. SULFASALAZINE. [Suspect]
     Active Substance: SULFASALAZINE
     Indication: SYSTEMIC LUPUS ERYTHEMATOSUS
     Route: 065
  15. ACTEMRA [Suspect]
     Active Substance: TOCILIZUMAB
     Indication: SYSTEMIC LUPUS ERYTHEMATOSUS
     Route: 065
  16. ENBREL [Suspect]
     Active Substance: ETANERCEPT
     Indication: SYSTEMIC LUPUS ERYTHEMATOSUS
     Route: 065
  17. HUMIRA [Suspect]
     Active Substance: ADALIMUMAB
     Indication: SYSTEMIC LUPUS ERYTHEMATOSUS
     Route: 065
  18. REMICADE [Suspect]
     Active Substance: INFLIXIMAB
     Indication: SYSTEMIC LUPUS ERYTHEMATOSUS
     Route: 042
  19. SULFASALAZINE. [Suspect]
     Active Substance: SULFASALAZINE
     Indication: RHEUMATOID ARTHRITIS
  20. HYDROXYCHLOROQUINE SULFATE. [Suspect]
     Active Substance: HYDROXYCHLOROQUINE SULFATE
     Indication: SYSTEMIC LUPUS ERYTHEMATOSUS
  21. ORENCIA [Suspect]
     Active Substance: ABATACEPT
     Indication: RHEUMATOID ARTHRITIS
  22. RITUXIMAB (UNKNOWN) [Suspect]
     Active Substance: RITUXIMAB
     Indication: SYSTEMIC LUPUS ERYTHEMATOSUS
     Route: 042
  23. ARAVA [Suspect]
     Active Substance: LEFLUNOMIDE
     Indication: SYSTEMIC LUPUS ERYTHEMATOSUS
     Route: 065
  24. ARAVA [Suspect]
     Active Substance: LEFLUNOMIDE
     Indication: RHEUMATOID ARTHRITIS
  25. REMICADE [Suspect]
     Active Substance: INFLIXIMAB
     Indication: RHEUMATOID ARTHRITIS
  26. RITUXIMAB (UNKNOWN) [Suspect]
     Active Substance: RITUXIMAB
     Indication: RHEUMATOID ARTHRITIS

REACTIONS (14)
  - Red blood cell sedimentation rate increased [Recovered/Resolved]
  - Thrombosis [Recovered/Resolved]
  - Drug ineffective [Recovered/Resolved]
  - C-reactive protein increased [Recovered/Resolved]
  - Pulmonary embolism [Recovered/Resolved]
  - Pulmonary thrombosis [Recovered/Resolved]
  - Sepsis [Recovered/Resolved]
  - Pain [Recovered/Resolved]
  - Apparent death [Recovered/Resolved]
  - Renal failure [Recovered/Resolved]
  - Deep vein thrombosis [Recovered/Resolved]
  - Off label use [Unknown]
  - Diverticulitis [Recovered/Resolved]
  - Joint swelling [Recovered/Resolved]
